FAERS Safety Report 5245262-6 (Version None)
Quarter: 2007Q1

REPORT INFORMATION
  Report Type: 
  Country: None (occurrence: None)
  Receive Date: 20070223
  Receipt Date: 20070216
  Transmission Date: 20070707
  Serious: Yes (Hospitalization)
  Sender: FDA-Public Use
  Company Number: JP-MERCK-0702USA00496

PATIENT
  Age: 23 Year
  Sex: Female
  Weight: 58 kg

DRUGS (4)
  1. VALPROATE SODIUM [Concomitant]
     Route: 048
  2. TRYPTANOL [Suspect]
     Route: 048
  3. CODEINE PHOSPHATE [Concomitant]
     Route: 048
  4. CODEINE PHOSPHATE [Concomitant]
     Route: 048

REACTIONS (10)
  - BLOOD PRESSURE DECREASED [None]
  - CYANOSIS [None]
  - DEPRESSION [None]
  - FOETAL HEART RATE INCREASED [None]
  - INTENTIONAL OVERDOSE [None]
  - LOSS OF CONSCIOUSNESS [None]
  - PAIN [None]
  - PAIN IN EXTREMITY [None]
  - RESPIRATORY RATE DECREASED [None]
  - SUICIDE ATTEMPT [None]
